FAERS Safety Report 9913590 (Version 1)
Quarter: 2014Q1

REPORT INFORMATION
  Report Type: Spontaneous
  Country: US (occurrence: None)
  Receive Date: 20140212
  Receipt Date: 20140212
  Transmission Date: 20141002
  Serious: No
  Sender: FDA-Public Use
  Company Number: AUR-APL-2014-00948

PATIENT
  Age: 78 Year
  Sex: Male

DRUGS (3)
  1. MIRTAZAPINE (MIRTAZAPINE) [Suspect]
     Indication: PRODUCT USED FOR UNKNOWN INDICATION
  2. ACETAMINOPHEN/OXYCODONE [Suspect]
     Indication: PRODUCT USED FOR UNKNOWN INDICATION
  3. LORAZEPAM [Suspect]

REACTIONS (3)
  - Completed suicide [None]
  - Toxicity to various agents [None]
  - Drug abuse [None]
